FAERS Safety Report 8158401-4 (Version None)
Quarter: 2012Q1

REPORT INFORMATION
  Report Type: 
  Country: None (occurrence: None)
  Receive Date: 20120223
  Receipt Date: 20120215
  Transmission Date: 20120608
  Serious: Yes (Hospitalization)
  Sender: FDA-Public Use
  Company Number: US-BAYER-2011-107608

PATIENT
  Age: 32 Year
  Sex: Female
  Weight: 97.506 kg

DRUGS (4)
  1. CLINDAMYCIN [Concomitant]
     Indication: INFECTION
  2. YAZ [Suspect]
     Indication: CONTRACEPTION
     Dosage: UNK
     Dates: start: 20081201, end: 20090401
  3. STEROID TAPER [Concomitant]
  4. ATIVAN [Concomitant]

REACTIONS (5)
  - PAIN IN EXTREMITY [None]
  - DEEP VEIN THROMBOSIS [None]
  - THROMBOSIS [None]
  - DYSPNOEA [None]
  - PULMONARY EMBOLISM [None]
